FAERS Safety Report 5274562-9 (Version None)
Quarter: 2007Q1

REPORT INFORMATION
  Report Type: 
  Country: None (occurrence: None)
  Receive Date: 20070320
  Receipt Date: 20070313
  Transmission Date: 20070707
  Serious: Yes (Other)
  Sender: FDA-Public Use
  Company Number: GXKR2007DE02476

PATIENT
  Age: 41 Year
  Sex: Male
  Weight: 118 kg

DRUGS (1)
  1. CEFUROXIME [Suspect]
     Indication: SINUSITIS
     Dosage: 500 MG, ONCE/SINGLE, ORAL
     Route: 048
     Dates: start: 20070215, end: 20070215

REACTIONS (3)
  - BLOOD PRESSURE INCREASED [None]
  - FLUSHING [None]
  - TACHYCARDIA [None]
